FAERS Safety Report 9121257 (Version 1)
Quarter: 2013Q1

REPORT INFORMATION
  Report Type: Spontaneous
  Country: IE (occurrence: IE)
  Receive Date: 20130225
  Receipt Date: 20130225
  Transmission Date: 20140127
  Serious: Yes (Hospitalization)
  Sender: FDA-Public Use
  Company Number: IE-ASTRAZENECA-2013SE11698

PATIENT
  Age: 6 Month
  Sex: Female

DRUGS (3)
  1. SYNAGIS [Suspect]
     Indication: TRACHEO-OESOPHAGEAL FISTULA
     Route: 030
  2. ZANTAC [Concomitant]
     Indication: PRODUCT USED FOR UNKNOWN INDICATION
  3. LOSEC [Concomitant]
     Indication: PRODUCT USED FOR UNKNOWN INDICATION

REACTIONS (2)
  - Lower respiratory tract infection [Unknown]
  - Off label use [Unknown]
